FAERS Safety Report 4311744-4 (Version None)
Quarter: 2004Q1

REPORT INFORMATION
  Report Type: 
  Country: None (occurrence: None)
  Receive Date: 20040304
  Receipt Date: 20040304
  Transmission Date: 20041129
  Serious: Yes (Death)
  Sender: FDA-Public Use
  Company Number: None

PATIENT
  Age: 49 Year
  Sex: Female
  Weight: 66.8 kg

DRUGS (2)
  1. TAXOL [Suspect]
     Indication: NON-SMALL CELL LUNG CANCER
     Dosage: 200 MG/M2 Q3WK IV
     Route: 042
     Dates: start: 20040205, end: 20040215
  2. CARBOPLATIN [Suspect]
     Indication: NON-SMALL CELL LUNG CANCER
     Dosage: AUC=6.0 Q3WK IV
     Route: 042
     Dates: start: 20040205, end: 20040215

REACTIONS (6)
  - LUNG DISORDER [None]
  - MALIGNANT NEOPLASM PROGRESSION [None]
  - METASTASES TO SPINE [None]
  - NON-SMALL CELL LUNG CANCER [None]
  - PERFORMANCE STATUS DECREASED [None]
  - SPINAL CORD COMPRESSION [None]
